FAERS Safety Report 20068859 (Version 2)
Quarter: 2021Q4

REPORT INFORMATION
  Report Type: Report from Study
  Country: US (occurrence: US)
  Receive Date: 20211115
  Receipt Date: 20211116
  Transmission Date: 20220303
  Serious: Yes (Other)
  Sender: FDA-Public Use
  Company Number: US-ABBVIE-21K-163-4153817-00

PATIENT
  Age: 34 Year
  Sex: Female
  Weight: 52.210 kg

DRUGS (5)
  1. ORILISSA [Suspect]
     Active Substance: ELAGOLIX SODIUM
     Indication: Ovarian cyst
     Dosage: TWICE A DAY
     Route: 048
     Dates: start: 20191231, end: 202110
  2. ORILISSA [Suspect]
     Active Substance: ELAGOLIX SODIUM
     Indication: Endometriosis
     Route: 048
     Dates: start: 202110
  3. TOPIRAMATE [Concomitant]
     Active Substance: TOPIRAMATE
     Indication: Migraine
  4. EMGALITY [Concomitant]
     Active Substance: GALCANEZUMAB-GNLM
     Indication: Migraine
  5. METHIMAZOLE [Concomitant]
     Active Substance: METHIMAZOLE
     Indication: Hyperthyroidism

REACTIONS (9)
  - Ovarian cyst ruptured [Recovering/Resolving]
  - Abdominal pain lower [Recovering/Resolving]
  - Gait inability [Recovering/Resolving]
  - Dysstasia [Recovering/Resolving]
  - Hyperthyroidism [Recovering/Resolving]
  - Basedow^s disease [Recovering/Resolving]
  - Haemorrhagic ovarian cyst [Recovering/Resolving]
  - Adnexa uteri pain [Unknown]
  - Amenorrhoea [Unknown]

NARRATIVE: CASE EVENT DATE: 20210601
